FAERS Safety Report 22171114 (Version 2)
Quarter: 2023Q2

REPORT INFORMATION
  Report Type: Spontaneous
  Country: JP (occurrence: JP)
  Receive Date: 20230404
  Receipt Date: 20230627
  Transmission Date: 20230721
  Serious: Yes (Death, Other)
  Sender: FDA-Public Use
  Company Number: JP-TAKEDA-2023TJP004104AA

PATIENT
  Age: 6 Decade
  Sex: Male

DRUGS (1)
  1. CABOMETYX [Suspect]
     Active Substance: CABOZANTINIB S-MALATE
     Indication: Renal cell carcinoma
     Dosage: 40 MG, QD
     Route: 048
     Dates: start: 20230301, end: 20230314

REACTIONS (2)
  - Stevens-Johnson syndrome [Fatal]
  - Toxic epidermal necrolysis [Fatal]
